FAERS Safety Report 9409328 (Version 1)
Quarter: 2013Q3

REPORT INFORMATION
  Report Type: Spontaneous
  Country: US (occurrence: US)
  Receive Date: 20130719
  Receipt Date: 20130719
  Transmission Date: 20140515
  Serious: No
  Sender: FDA-Public Use
  Company Number: US-PFIZER INC-2013211684

PATIENT
  Age: 51 Year
  Sex: Female

DRUGS (4)
  1. ZOLOFT [Suspect]
     Indication: MAJOR DEPRESSION
     Dosage: 50 MG, 2X/DAY
     Route: 048
  2. ZOLOFT [Suspect]
     Indication: PANIC ATTACK
  3. IBUPROFEN [Concomitant]
     Indication: MIGRAINE
     Dosage: UNK
  4. ACETAMINOPHEN [Concomitant]
     Indication: MIGRAINE
     Dosage: UNK

REACTIONS (2)
  - Sucrose intolerance [Unknown]
  - Dyspepsia [Unknown]
